FAERS Safety Report 23109966 (Version 1)
Quarter: 2023Q4

REPORT INFORMATION
  Report Type: Spontaneous
  Country: JP (occurrence: JP)
  Receive Date: 20231026
  Receipt Date: 20231026
  Transmission Date: 20240110
  Serious: Yes (Hospitalization)
  Sender: FDA-Public Use
  Company Number: JP-Eisai-202301077_FYC_P_1

PATIENT
  Age: 14 Year
  Sex: Male

DRUGS (12)
  1. FYCOMPA [Suspect]
     Active Substance: PERAMPANEL
     Indication: Epilepsy
     Route: 048
     Dates: start: 20220805, end: 20220905
  2. FYCOMPA [Suspect]
     Active Substance: PERAMPANEL
     Route: 048
     Dates: start: 20220906, end: 20221002
  3. FYCOMPA [Suspect]
     Active Substance: PERAMPANEL
     Route: 048
     Dates: start: 20221003, end: 20221106
  4. FYCOMPA [Suspect]
     Active Substance: PERAMPANEL
     Route: 048
     Dates: start: 20221107, end: 20221219
  5. FYCOMPA [Suspect]
     Active Substance: PERAMPANEL
     Route: 048
     Dates: start: 20221220, end: 20230302
  6. FYCOMPA [Suspect]
     Active Substance: PERAMPANEL
     Route: 048
     Dates: start: 20230303
  7. LEVETIRACETAM [Concomitant]
     Active Substance: LEVETIRACETAM
     Indication: Epilepsy
     Route: 065
  8. MYSTAN [Concomitant]
     Active Substance: CLOBAZAM
     Indication: Epilepsy
     Route: 065
  9. RAPIACTA [Concomitant]
     Active Substance: PERAMIVIR
     Indication: Influenza
     Route: 065
     Dates: start: 20230217, end: 20230217
  10. ZOSYN [Concomitant]
     Active Substance: PIPERACILLIN SODIUM\TAZOBACTAM SODIUM
     Indication: Pneumonia
     Route: 065
     Dates: start: 20230220, end: 20230223
  11. MINOCYCLINE HYDROCHLORIDE [Concomitant]
     Active Substance: MINOCYCLINE HYDROCHLORIDE
     Indication: Pneumonia
     Route: 065
     Dates: start: 20230223, end: 20230302
  12. CLAFORAN [Concomitant]
     Active Substance: CEFOTAXIME SODIUM
     Indication: Pneumonia
     Route: 065
     Dates: start: 20230223, end: 20230302

REACTIONS (4)
  - Altered state of consciousness [Recovering/Resolving]
  - Anticonvulsant drug level increased [Recovering/Resolving]
  - Hepatic function abnormal [Recovered/Resolved]
  - Urinary tract infection [Unknown]

NARRATIVE: CASE EVENT DATE: 20230223
